FAERS Safety Report 9921277 (Version 1)
Quarter: 2014Q1

REPORT INFORMATION
  Report Type: Spontaneous
  Country: FR (occurrence: FR)
  Receive Date: 20140225
  Receipt Date: 20140225
  Transmission Date: 20141002
  Serious: Yes (Other)
  Sender: FDA-Public Use
  Company Number: PHHY2014FR018713

PATIENT
  Sex: Female

DRUGS (1)
  1. FEMARA [Suspect]
     Indication: BREAST CANCER
     Dosage: 1 DF, QD
     Route: 048

REACTIONS (4)
  - Cholelithiasis [Not Recovered/Not Resolved]
  - Calculus urinary [Recovered/Resolved]
  - Renal colic [Recovered/Resolved]
  - Abdominal pain upper [Not Recovered/Not Resolved]
